FAERS Safety Report 6678051-6 (Version None)
Quarter: 2010Q2

REPORT INFORMATION
  Report Type: 
  Country: None (occurrence: None)
  Receive Date: 20100412
  Receipt Date: 20100330
  Transmission Date: 20101027
  Serious: Yes (Other)
  Sender: FDA-Public Use
  Company Number: PHHY2010US18664

PATIENT
  Sex: Male

DRUGS (9)
  1. ZOMETA [Suspect]
     Dosage: 1 PER MOMTH
     Route: 042
     Dates: start: 20060117, end: 20090703
  2. ASPIRIN [Concomitant]
  3. PLAVIX [Concomitant]
  4. PAMIPILL [Concomitant]
  5. CHEMOTHERAPEUTICS NOS [Concomitant]
     Dosage: UNK
     Dates: start: 20090703
  6. ASPIRIN [Concomitant]
     Dosage: 81 MG / DAY
     Route: 048
  7. RAMIPRIL + METAPROLOL [Concomitant]
     Dosage: 5 / 25 MG / DAY
     Route: 048
  8. LUPRON [Concomitant]
     Dosage: 1 EVERY 4 MONTHS
  9. ZEOTIN [Concomitant]
     Dosage: 10MG / DAY
     Route: 048

REACTIONS (7)
  - GINGIVAL DISORDER [None]
  - IMPAIRED HEALING [None]
  - OPEN WOUND [None]
  - ORAL MUCOSAL EXFOLIATION [None]
  - OSTEONECROSIS [None]
  - STOMATITIS [None]
  - TOOTH LOSS [None]
